FAERS Safety Report 7507320-2 (Version None)
Quarter: 2011Q2

REPORT INFORMATION
  Report Type: 
  Country: None (occurrence: None)
  Receive Date: 20110526
  Receipt Date: 20110519
  Transmission Date: 20111010
  Serious: Yes (Hospitalization)
  Sender: FDA-Public Use
  Company Number: US-ACTELION-A-NJ2010-42900

PATIENT

DRUGS (18)
  1. BENADRYL [Concomitant]
  2. BUMETANIDE [Concomitant]
  3. MIDODRINE HYDROCHLORIDE [Concomitant]
  4. PRILOSEC [Concomitant]
  5. PROAIR HFA [Concomitant]
  6. VITAMIN B-12 [Concomitant]
  7. NASONEX [Concomitant]
  8. TRACLEER [Suspect]
     Indication: PULMONARY ARTERIAL HYPERTENSION
     Dosage: UNK
     Route: 048
     Dates: start: 20091119
  9. POTASSIUM CHLORIDE [Concomitant]
  10. ALDACTONE [Concomitant]
  11. ULTRAM [Concomitant]
  12. MEPHYTON [Concomitant]
  13. BENZONATATE [Concomitant]
  14. PEPCID [Concomitant]
  15. WARFARIN SODIUM [Concomitant]
  16. FLONASE [Concomitant]
  17. PHENERGAN HCL [Concomitant]
  18. ASPIRIN [Concomitant]

REACTIONS (3)
  - ASCITES [None]
  - DYSPNOEA [None]
  - CENTRAL VENOUS CATHETERISATION [None]
